FAERS Safety Report 21029598 (Version 1)
Quarter: 2022Q2

REPORT INFORMATION
  Report Type: Spontaneous
  Country: US (occurrence: US)
  Receive Date: 20220630
  Receipt Date: 20220630
  Transmission Date: 20220721
  Serious: Yes (Death, Other)
  Sender: FDA-Public Use
  Company Number: US-SA-SAC20220630000534

PATIENT
  Age: 78 Year
  Sex: Male

DRUGS (1)
  1. ZANTAC [Suspect]
     Active Substance: RANITIDINE HYDROCHLORIDE
     Indication: Gastric ulcer
     Dosage: UNKNOWN AT THIS TIME;QD
     Dates: start: 196001, end: 201901

REACTIONS (1)
  - Colorectal cancer [Fatal]

NARRATIVE: CASE EVENT DATE: 20200401
